FAERS Safety Report 13431739 (Version 3)
Quarter: 2017Q2

REPORT INFORMATION
  Report Type: Spontaneous
  Country: US (occurrence: US)
  Receive Date: 20170412
  Receipt Date: 20170503
  Transmission Date: 20170830
  Serious: Yes (Hospitalization)
  Sender: FDA-Public Use
  Company Number: US-LUNDBECK-DKLU2028449

PATIENT
  Sex: Male

DRUGS (3)
  1. NORTHERA [Suspect]
     Active Substance: DROXIDOPA
     Indication: AUTONOMIC NERVOUS SYSTEM IMBALANCE
     Dosage: SCHEDULE C
     Route: 065
     Dates: start: 20170317
  2. NORTHERA [Suspect]
     Active Substance: DROXIDOPA
     Route: 065
     Dates: start: 20170330
  3. NORTHERA [Suspect]
     Active Substance: DROXIDOPA
     Dosage: SCHEDULE C
     Route: 065
     Dates: start: 20170317

REACTIONS (9)
  - Rhabdomyolysis [Unknown]
  - Drug ineffective [Unknown]
  - Renal disorder [Unknown]
  - Orthostatic hypotension [Unknown]
  - Abdominal discomfort [Unknown]
  - Nausea [Unknown]
  - Hypotension [Unknown]
  - Pulmonary hypertension [Unknown]
  - Asthenia [Unknown]
